FAERS Safety Report 9646949 (Version 2)
Quarter: 2013Q4

REPORT INFORMATION
  Report Type: Spontaneous
  Country: US (occurrence: US)
  Receive Date: 20131027
  Receipt Date: 20131027
  Transmission Date: 20140711
  Serious: Yes (Other)
  Sender: FDA-Public Use
  Company Number: US-NAPPMUNDI-USA-2013-0101096

PATIENT
  Sex: Female
  Weight: 54.42 kg

DRUGS (2)
  1. OXYCONTIN (NDA 22-272) [Suspect]
     Indication: NECK PAIN
     Dosage: 10 MG, Q12H
     Route: 048
     Dates: start: 20130305, end: 20130319
  2. ALCOHOL [Suspect]
     Indication: ALCOHOL USE
     Route: 048

REACTIONS (2)
  - Substance abuse [Unknown]
  - Nausea [Recovered/Resolved]
